FAERS Safety Report 9373935 (Version 1)
Quarter: 2013Q2

REPORT INFORMATION
  Report Type: Other
  Country: JP (occurrence: JP)
  Receive Date: 20130628
  Receipt Date: 20130628
  Transmission Date: 20140414
  Serious: Yes (Life-Threatening)
  Sender: FDA-Public Use
  Company Number: JP-BRISTOL-MYERS SQUIBB COMPANY-19020353

PATIENT
  Age: 15 Year
  Sex: Male

DRUGS (2)
  1. PROCAINAMIDE HCL [Suspect]
     Indication: ATRIAL TACHYCARDIA
     Route: 042
  2. DISOPYRAMIDE [Suspect]
     Indication: ATRIAL TACHYCARDIA
     Route: 042

REACTIONS (4)
  - Torsade de pointes [Unknown]
  - Electrocardiogram QT prolonged [Unknown]
  - Disease recurrence [None]
  - Ventricular fibrillation [None]
